FAERS Safety Report 18850679 (Version 2)
Quarter: 2021Q1

REPORT INFORMATION
  Report Type: Spontaneous
  Country: US (occurrence: US)
  Receive Date: 20210205
  Receipt Date: 20210304
  Transmission Date: 20210420
  Serious: No
  Sender: FDA-Public Use
  Company Number: US-ASTRAZENECA-2021A012863

PATIENT
  Age: 14422 Day
  Sex: Female

DRUGS (8)
  1. DULOXETINE CAPSULE [Concomitant]
     Active Substance: DULOXETINE
     Indication: DEPRESSION
     Route: 065
  2. PROAIR HFA [Concomitant]
     Active Substance: ALBUTEROL SULFATE
     Indication: ASTHMA
     Dosage: 1?2 INHALATIONS EVERY 4?6HRS PRN (AS NEEDED)
     Route: 055
  3. FASENRA [Suspect]
     Active Substance: BENRALIZUMAB
     Indication: ASTHMA
     Dosage: 30.0MG/ML UNKNOWN
     Route: 058
     Dates: start: 20210114
  4. MONTELUKAST [Concomitant]
     Active Substance: MONTELUKAST SODIUM
     Indication: ASTHMA
     Route: 065
  5. ALBUTEROL NEBULIZER [Concomitant]
     Active Substance: ALBUTEROL
     Indication: ASTHMA
     Dosage: 1 VIAL EVERY 4?6HRS AS REQUIRED
     Route: 065
  6. NAPROXEN. [Concomitant]
     Active Substance: NAPROXEN
     Indication: PAIN
     Dosage: 500MG EVERY12HRS PRN (AS NEEDED)
     Route: 065
  7. ADVAIR DISKUS [Concomitant]
     Active Substance: FLUTICASONE PROPIONATE\SALMETEROL XINAFOATE
     Indication: ASTHMA
     Dosage: 230/21 TWO INHALATIONS TWICE A DAY
     Route: 055
  8. FLEXERIL [Concomitant]
     Active Substance: CYCLOBENZAPRINE HYDROCHLORIDE
     Indication: PAIN
     Dosage: 10MG TAB THREE TIMES A DAY PRN (AS NEEDED)
     Route: 065

REACTIONS (5)
  - Condition aggravated [Unknown]
  - Drug dose omission by device [Unknown]
  - Device leakage [Unknown]
  - Haemorrhage [Unknown]
  - Device malfunction [Unknown]

NARRATIVE: CASE EVENT DATE: 20210114
